FAERS Safety Report 11170776 (Version 1)
Quarter: 2015Q2

REPORT INFORMATION
  Report Type: Spontaneous
  Country: US (occurrence: None)
  Receive Date: 20150605
  Receipt Date: 20150605
  Transmission Date: 20150821
  Serious: No
  Sender: FDA-Public Use
  Company Number: None

PATIENT
  Age: 41 Year
  Sex: Female

DRUGS (5)
  1. PREDNISONE. [Concomitant]
     Active Substance: PREDNISONE
  2. GLATIRAMER [Concomitant]
     Active Substance: GLATIRAMER
  3. OXYBUTYNIN [Concomitant]
     Active Substance: OXYBUTYNIN
  4. ERGOCALCIFEROL. [Concomitant]
     Active Substance: ERGOCALCIFEROL
  5. AMPYRA [Suspect]
     Active Substance: DALFAMPRIDINE
     Indication: MULTIPLE SCLEROSIS
     Dosage: 10MG, QD, ORAL
     Route: 048
     Dates: start: 201306

REACTIONS (2)
  - Therapy change [None]
  - Laboratory test abnormal [None]

NARRATIVE: CASE EVENT DATE: 20150414
